FAERS Safety Report 7012831 (Version 2)
Quarter: 2014Q3

REPORT INFORMATION
  Report Type: Spontaneous
  Country: US (occurrence: None)
  Receive Date: 20090526
  Receipt Date: 20140721
  Transmission Date: 20150326
  Serious: Yes (Other)
  Sender: FDA-Public Use
  Company Number: 2009S1004055

PATIENT
  Age: 52 Year
  Sex: Male

DRUGS (10)
  1. FERROUS GLUCONATE [Concomitant]
     Active Substance: FERROUS GLUCONATE
  2. LISINOPRIL. [Concomitant]
     Active Substance: LISINOPRIL
  3. PHOSPHO-SODA [Suspect]
     Active Substance: SODIUM PHOSPHATE, DIBASIC\SODIUM PHOSPHATE, MONOBASIC
     Indication: COLONOSCOPY
     Dosage: 2 IN 1 DAYS, ORAL
     Route: 048
     Dates: start: 20081006, end: 20081006
  4. NAPROSYN (NAPROXEN) [Concomitant]
  5. PRILOSEC (OMEPRAZOLE) [Concomitant]
     Active Substance: OMEPRAZOLE MAGNESIUM
  6. LORATADINE. [Concomitant]
     Active Substance: LORATADINE
  7. FLUTICASONE PROPIONATE. [Concomitant]
     Active Substance: FLUTICASONE PROPIONATE
  8. TERAZOSIN [Concomitant]
     Active Substance: TERAZOSIN\TERAZOSIN HYDROCHLORIDE
  9. DULCOLAX (BISACODYL) [Suspect]
     Active Substance: BISACODYL
     Dates: start: 20081006, end: 20081006
  10. CIALIS [Concomitant]
     Active Substance: TADALAFIL

REACTIONS (1)
  - Renal impairment [None]

NARRATIVE: CASE EVENT DATE: 200806
